FAERS Safety Report 19464029 (Version 1)
Quarter: 2021Q2

REPORT INFORMATION
  Report Type: Spontaneous
  Country: US (occurrence: US)
  Receive Date: 20210625
  Receipt Date: 20210625
  Transmission Date: 20210717
  Serious: Yes (Hospitalization, Other)
  Sender: FDA-Public Use
  Company Number: NVSC2021US138140

PATIENT
  Age: 18 Year
  Sex: Male
  Weight: 82.8 kg

DRUGS (2)
  1. TOCILIZUMAB. [Concomitant]
     Active Substance: TOCILIZUMAB
     Indication: CYTOKINE RELEASE SYNDROME
     Dosage: 704 MG, 8MG/KG
     Route: 042
     Dates: start: 20210516, end: 20210516
  2. KYMRIAH [Suspect]
     Active Substance: TISAGENLECLEUCEL
     Indication: ACUTE LYMPHOCYTIC LEUKAEMIA
     Dosage: 1.7X10E8 CAR POSITIVE VIABLE T?CELL
     Route: 042
     Dates: start: 20210511

REACTIONS (6)
  - Bradykinesia [Unknown]
  - Cytokine release syndrome [Recovered/Resolved]
  - Slow speech [Unknown]
  - Hypotension [Unknown]
  - Hypoxia [Unknown]
  - Pyrexia [Recovered/Resolved]

NARRATIVE: CASE EVENT DATE: 20210512
